FAERS Safety Report 21335240 (Version 1)
Quarter: 2022Q3

REPORT INFORMATION
  Report Type: Spontaneous
  Country: US (occurrence: US)
  Receive Date: 20220915
  Receipt Date: 20220915
  Transmission Date: 20221026
  Serious: No
  Sender: FDA-Public Use
  Company Number: US-BEIGENE USA INC-BGN-2022-009137

PATIENT

DRUGS (5)
  1. BRUKINSA [Suspect]
     Active Substance: ZANUBRUTINIB
     Indication: Waldenstrom^s macroglobulinaemia
     Dosage: 2 CAPSULES IN MORNING AND 2 CAPSULES IN EVENING, BID
     Route: 048
     Dates: start: 20220612, end: 20220811
  2. BRUKINSA [Suspect]
     Active Substance: ZANUBRUTINIB
     Dosage: FULL DOSE OF 2 CAPSULES IN MORNING AND 2 CAPSULES IN EVENING EVERY OTHER DAY FOR A WEEK AND A HALF B
     Route: 048
     Dates: start: 20220812, end: 20220822
  3. BRUKINSA [Suspect]
     Active Substance: ZANUBRUTINIB
     Dosage: UNK UNK, BID
     Route: 048
     Dates: start: 20220829
  4. CHOLESTEROL [Concomitant]
     Active Substance: CHOLESTEROL
     Indication: Blood cholesterol
  5. CLARITIN [Concomitant]
     Active Substance: LORATADINE

REACTIONS (8)
  - Upper respiratory tract congestion [Unknown]
  - Cough [Unknown]
  - Feeling abnormal [Unknown]
  - Fatigue [Unknown]
  - Pruritus [Recovered/Resolved]
  - Headache [Recovered/Resolved]
  - Rash [Unknown]
  - Product administration interrupted [Unknown]
